FAERS Safety Report 19728565 (Version 1)
Quarter: 2021Q3

REPORT INFORMATION
  Report Type: Spontaneous
  Country: CA (occurrence: CA)
  Receive Date: 20210820
  Receipt Date: 20210820
  Transmission Date: 20211014
  Serious: Yes (Hospitalization)
  Sender: FDA-Public Use
  Company Number: CA-TEVA-2021-CA-1942701

PATIENT
  Age: 57 Year
  Sex: Female
  Weight: 54.48 kg

DRUGS (19)
  1. COTRIMOXAZOLE [Concomitant]
     Active Substance: SULFAMETHOXAZOLE\TRIMETHOPRIM
  2. BISOPROLOL [Concomitant]
     Active Substance: BISOPROLOL
  3. LANSOPRAZOLE. [Concomitant]
     Active Substance: LANSOPRAZOLE
  4. PANTOPRAZOLE [Concomitant]
     Active Substance: PANTOPRAZOLE
  5. AMLODIPINE [Concomitant]
     Active Substance: AMLODIPINE BESYLATE
  6. PREDNISOLONE. [Concomitant]
     Active Substance: PREDNISOLONE
  7. SENNA [Concomitant]
     Active Substance: SENNA LEAF\SENNOSIDES\SENNOSIDES A AND B
  8. VALACYCLOVIR [Suspect]
     Active Substance: VALACYCLOVIR HYDROCHLORIDE
     Indication: OPHTHALMIC HERPES ZOSTER
     Dosage: 3 GRAM DAILY;
  9. EPOETIN ALFA [Concomitant]
     Active Substance: ERYTHROPOIETIN
  10. SALBUTAMOL [Concomitant]
     Active Substance: ALBUTEROL
  11. VALACYCLOVIR [Concomitant]
     Active Substance: VALACYCLOVIR HYDROCHLORIDE
  12. CALCIUM [Concomitant]
     Active Substance: CALCIUM
  13. DIMENHYDRINATE. [Concomitant]
     Active Substance: DIMENHYDRINATE
  14. IPRATROPIUM [Concomitant]
     Active Substance: IPRATROPIUM
  15. MYCOPHENOLATE MOFETIL. [Concomitant]
     Active Substance: MYCOPHENOLATE MOFETIL
  16. TOBRAMYCIN. [Concomitant]
     Active Substance: TOBRAMYCIN
  17. BETAMETHASONE. [Concomitant]
     Active Substance: BETAMETHASONE
  18. PREDNISONE. [Concomitant]
     Active Substance: PREDNISONE
  19. HYDROXYCHLOROQUINE [Concomitant]
     Active Substance: HYDROXYCHLOROQUINE

REACTIONS (3)
  - Encephalopathy [Unknown]
  - Disseminated varicella zoster virus infection [Unknown]
  - Toxicity to various agents [Unknown]
